FAERS Safety Report 10390379 (Version 5)
Quarter: 2015Q2

REPORT INFORMATION
  Report Type: Spontaneous
  Country: US (occurrence: US)
  Receive Date: 20140818
  Receipt Date: 20150617
  Transmission Date: 20150821
  Serious: No
  Sender: FDA-Public Use
  Company Number: US-PFIZER INC-2014228921

PATIENT
  Age: 67 Year
  Sex: Male
  Weight: 75 kg

DRUGS (5)
  1. CELEBREX [Suspect]
     Active Substance: CELECOXIB
     Indication: ARTHRITIS
     Dosage: 200 MG, UNK
  2. CELEBREX [Suspect]
     Active Substance: CELECOXIB
     Indication: CAUDA EQUINA SYNDROME
     Dosage: 200 MG, 2X/DAY
  3. HYDROCODONE [Concomitant]
     Active Substance: HYDROCODONE
     Dosage: UNK
  4. MORPHINE [Concomitant]
     Active Substance: MORPHINE
     Dosage: UNK
  5. CELEBREX [Suspect]
     Active Substance: CELECOXIB
     Indication: BACK PAIN

REACTIONS (1)
  - Gingival bleeding [Unknown]

NARRATIVE: CASE EVENT DATE: 2010
